FAERS Safety Report 7557614-X (Version None)
Quarter: 2011Q2

REPORT INFORMATION
  Report Type: 
  Country: None (occurrence: None)
  Receive Date: 20110620
  Receipt Date: 20110608
  Transmission Date: 20111010
  Serious: Yes (Death)
  Sender: FDA-Public Use
  Company Number: TR-ACTELION-A-CH2011-50046

PATIENT
  Sex: Female
  Weight: 6.5 kg

DRUGS (4)
  1. TRACLEER [Suspect]
     Dosage: 12 MG, BID
     Route: 048
     Dates: start: 20100906
  2. TRACLEER [Suspect]
     Indication: PULMONARY ARTERIAL HYPERTENSION
     Dosage: 12 MG, QD
     Route: 048
     Dates: start: 20100804, end: 20100905
  3. DIGOXIN [Concomitant]
  4. LASIX [Concomitant]

REACTIONS (4)
  - MULTI-ORGAN FAILURE [None]
  - VENTRICULAR SEPTAL DEFECT REPAIR [None]
  - HEPATIC ENZYME INCREASED [None]
  - POST PROCEDURAL COMPLICATION [None]
